FAERS Safety Report 4712646-1 (Version None)
Quarter: 2005Q3

REPORT INFORMATION
  Report Type: 
  Country: None (occurrence: None)
  Receive Date: 20050706
  Receipt Date: 20040730
  Transmission Date: 20060218
  Serious: Yes (Hospitalization, Other)
  Sender: FDA-Public Use
  Company Number: US-2004-029564

PATIENT
  Age: 63 Year
  Sex: Male

DRUGS (1)
  1. CAMPATH [Suspect]
     Indication: CHRONIC LYMPHOCYTIC LEUKAEMIA
     Dosage: 3/10/30 MG/D, CYCLES, INTRAVENOUS
     Route: 042
     Dates: start: 20040707, end: 20040719

REACTIONS (3)
  - HYPERBILIRUBINAEMIA [None]
  - PANCYTOPENIA [None]
  - PROCTITIS [None]
